FAERS Safety Report 9084730 (Version 2)
Quarter: 2013Q2

REPORT INFORMATION
  Report Type: Report from Study
  Country: JP (occurrence: JP)
  Receive Date: 20130129
  Receipt Date: 20130408
  Transmission Date: 20140414
  Serious: Yes (Hospitalization, Other)
  Sender: FDA-Public Use
  Company Number: PHHY2013JP007165

PATIENT
  Age: 65 Year
  Sex: Male
  Weight: 65 kg

DRUGS (13)
  1. AFINITOR [Suspect]
     Indication: METASTATIC RENAL CELL CARCINOMA
     Dosage: 10 MG, UNK
     Route: 048
     Dates: start: 20110822, end: 20110915
  2. HACHIAZULE [Concomitant]
     Indication: PROPHYLAXIS
     Dosage: 6 G
     Route: 048
     Dates: start: 20110822
  3. OXYCONTIN [Concomitant]
     Indication: METASTATIC RENAL CELL CARCINOMA
     Dosage: 10 MG
     Route: 048
     Dates: start: 20110830
  4. NOVAMIN [Concomitant]
     Indication: METASTATIC RENAL CELL CARCINOMA
     Dosage: 15 MG
     Route: 048
     Dates: start: 20110830, end: 20110905
  5. ZYPREXA [Concomitant]
     Indication: METASTATIC RENAL CELL CARCINOMA
     Dosage: 25 MG
     Route: 048
     Dates: start: 20110916
  6. ALOSITOL [Concomitant]
     Dosage: 200 MG, UNK
     Route: 048
     Dates: start: 20100728
  7. URSO [Concomitant]
     Dosage: 300 MG
     Route: 048
     Dates: start: 20110218
  8. BLOPRESS [Concomitant]
     Dosage: 12 MG
     Route: 048
     Dates: start: 20100628
  9. FLUITRAN [Concomitant]
     Dosage: 0.5 MG
     Route: 048
     Dates: start: 20110126
  10. FERO-GRADUMET [Concomitant]
     Dosage: 105 MG
     Route: 048
     Dates: start: 20110808
  11. SUNITINIB MALATE [Concomitant]
     Indication: METASTATIC RENAL CELL CARCINOMA
     Dosage: 800 MG, UNK
     Route: 048
     Dates: start: 20110608, end: 20110821
  12. ADRIAMYCIN [Concomitant]
     Indication: METASTATIC RENAL CELL CARCINOMA
     Dosage: 7.5 MG, UNK
     Dates: start: 20110208, end: 20110524
  13. GEMZAR [Concomitant]
     Indication: METASTATIC RENAL CELL CARCINOMA
     Dosage: 2250 MG, UNK
     Dates: start: 20110208, end: 20110524

REACTIONS (4)
  - Metastatic renal cell carcinoma [Not Recovered/Not Resolved]
  - Malignant neoplasm progression [Not Recovered/Not Resolved]
  - C-reactive protein increased [Unknown]
  - Haemoglobin decreased [Unknown]
